FAERS Safety Report 19138222 (Version 1)
Quarter: 2021Q2

REPORT INFORMATION
  Report Type: Spontaneous
  Country: US (occurrence: US)
  Receive Date: 20210415
  Receipt Date: 20210415
  Transmission Date: 20210717
  Serious: No
  Sender: FDA-Public Use
  Company Number: US-TEVA-2021-US-1898151

PATIENT
  Sex: Female
  Weight: 104.32 kg

DRUGS (8)
  1. CALCIUM CARBONATE. [Concomitant]
     Active Substance: CALCIUM CARBONATE
  2. VITAMIN D3 [Concomitant]
     Active Substance: CHOLECALCIFEROL
  3. LORATADINE. [Concomitant]
     Active Substance: LORATADINE
  4. PNEUMOVAX 23 [Concomitant]
     Active Substance: PNEUMOCOCCAL VACCINE, POLYVALENT 23
  5. LISINOPRIL. [Suspect]
     Active Substance: LISINOPRIL
     Dosage: DOSE LOWERED TO 20MG
     Route: 065
  6. LENVIMA [Suspect]
     Active Substance: LENVATINIB
     Dosage: 24 MILLIGRAM DAILY; 24MG BY MOUTH
     Route: 048
     Dates: start: 201803
  7. FLUARIX QUAD [Concomitant]
  8. OMEPRAZOLE. [Concomitant]
     Active Substance: OMEPRAZOLE

REACTIONS (3)
  - Hypotension [Unknown]
  - Dizziness [Unknown]
  - Feeling abnormal [Unknown]
